FAERS Safety Report 19674924 (Version 1)
Quarter: 2021Q3

REPORT INFORMATION
  Report Type: Spontaneous
  Country: LU (occurrence: LU)
  Receive Date: 20210809
  Receipt Date: 20210809
  Transmission Date: 20211014
  Serious: Yes (Other)
  Sender: FDA-Public Use
  Company Number: LU-SA-2021SA259876

PATIENT
  Age: 40 Year
  Sex: Female
  Weight: 56 kg

DRUGS (5)
  1. DEXAMETHASONE. [Concomitant]
     Active Substance: DEXAMETHASONE
     Indication: PROPHYLAXIS OF NAUSEA AND VOMITING
     Dosage: DRUG STAR DATE: 20?JUL?2021 LAST DOSE ADMINISTRED: 20?JUL?2021
     Route: 042
     Dates: start: 20210720, end: 20210720
  2. ELOXATIN [Suspect]
     Active Substance: OXALIPLATIN
     Indication: COLON CANCER
     Dosage: DRUG START: 20?JUL?2021
     Route: 042
     Dates: start: 20210720, end: 20210720
  3. ONDANSETRON [Concomitant]
     Active Substance: ONDANSETRON
     Indication: PROPHYLAXIS OF NAUSEA AND VOMITING
     Dosage: DRUG STAR DATE: 20?JUL?2021 LAST DOSE ADMINISTRED: 20?JUL?2021
     Route: 042
     Dates: start: 20210720, end: 20210720
  4. FOLINATE [Concomitant]
     Active Substance: LEUCOVORIN CALCIUM
     Indication: COLON CANCER
     Dosage: DRUG START DATE 20?JUL?2021
     Route: 042
     Dates: start: 20210720
  5. EMEND [Concomitant]
     Active Substance: APREPITANT
     Indication: PROPHYLAXIS OF NAUSEA AND VOMITING
     Dosage: DRUG START DATE 20?JUL?2021 LAST DOSE ADMINISTRED: 20?JUL?2021
     Route: 048
     Dates: start: 20210720, end: 20210720

REACTIONS (2)
  - Eye pruritus [Recovering/Resolving]
  - Throat irritation [Recovering/Resolving]

NARRATIVE: CASE EVENT DATE: 20210720
